FAERS Safety Report 5754098-9 (Version None)
Quarter: 2008Q2

REPORT INFORMATION
  Report Type: 
  Country: None (occurrence: None)
  Receive Date: 20080530
  Receipt Date: 20080526
  Transmission Date: 20081010
  Serious: Yes (Other)
  Sender: FDA-Public Use
  Company Number: PHEH2008US04089

PATIENT
  Sex: Female
  Weight: 48.072 kg

DRUGS (10)
  1. AREDIA [Suspect]
     Indication: MULTIPLE MYELOMA
     Dosage: 90 MG, MONTHLY
     Dates: start: 20010501, end: 20051201
  2. ZOMETA [Suspect]
     Dosage: 4 MG, MONTHLY
     Dates: start: 20060101, end: 20060901
  3. INTERFERON [Concomitant]
     Indication: MULTIPLE MYELOMA
     Dosage: 2 MU, X28D
     Dates: start: 20011008, end: 20030702
  4. VELCADE [Concomitant]
     Indication: MULTIPLE MYELOMA
     Dosage: 1.3MG/M2 EVERY 21D - D1,D4,D8,D11
     Dates: start: 20030709, end: 20031001
  5. VELCADE [Concomitant]
     Dosage: 1.3MG/M2 Q28DAYS-D1,D4,D8,D11
     Dates: start: 20050825, end: 20060703
  6. VELCADE [Concomitant]
     Dosage: 1.3MG/M2 Q28DAYS-D1,D4,D8,D11
     Dates: start: 20070622, end: 20071015
  7. VELCADE [Concomitant]
     Dosage: UNK, UNK
     Dates: start: 20080107
  8. INTRON A [Concomitant]
     Indication: MULTIPLE MYELOMA
     Dosage: UNK, QOD
     Dates: start: 20050411, end: 20050801
  9. DOXIL [Concomitant]
     Indication: MULTIPLE MYELOMA
     Dosage: 30MG/M2 Q28DAYS-D1
     Dates: start: 20080107
  10. DEXAMETHASONE TAB [Concomitant]
     Dosage: 40MG Q28DAYS D1-D4
     Dates: start: 20061001

REACTIONS (13)
  - BONE DISORDER [None]
  - BONE LESION [None]
  - DISCOMFORT [None]
  - GINGIVAL INFECTION [None]
  - IMPAIRED HEALING [None]
  - OEDEMA MOUTH [None]
  - ORAL PAIN [None]
  - OSTEOMYELITIS [None]
  - OSTEONECROSIS [None]
  - SOFT TISSUE INFECTION [None]
  - STOMATITIS [None]
  - TOOTH DISORDER [None]
  - TOOTH EXTRACTION [None]
